FAERS Safety Report 7543617-8 (Version None)
Quarter: 2011Q2

REPORT INFORMATION
  Report Type: 
  Country: None (occurrence: None)
  Receive Date: 20110613
  Receipt Date: 20110606
  Transmission Date: 20111010
  Serious: Yes (Hospitalization)
  Sender: FDA-Public Use
  Company Number: RU-GENZYME-CERZ-1002113

PATIENT
  Age: 54 Year
  Sex: Female
  Weight: 80 kg

DRUGS (2)
  1. ANTIHYPERTENSIVES [Concomitant]
     Indication: PRODUCT USED FOR UNKNOWN INDICATION
  2. CEREZYME [Suspect]
     Indication: GAUCHER'S DISEASE
     Dosage: 15 U/KG, Q2W
     Route: 042
     Dates: start: 20090101

REACTIONS (5)
  - SWELLING FACE [None]
  - CHEST PAIN [None]
  - DYSPNOEA [None]
  - URTICARIA [None]
  - ANGIOEDEMA [None]
